FAERS Safety Report 6181019-X (Version None)
Quarter: 2009Q2

REPORT INFORMATION
  Report Type: 
  Country: None (occurrence: None)
  Receive Date: 20090506
  Receipt Date: 20090505
  Transmission Date: 20091009
  Serious: No
  Sender: FDA-Public Use
  Company Number: US-B.I. PHARMACEUTICALS,INC./RIDGEFIELD-2009-BP-05115BP

PATIENT
  Age: 36 Year
  Sex: Female
  Weight: 97.07 kg

DRUGS (4)
  1. MIRAPEX [Suspect]
     Indication: RESTLESS LEGS SYNDROME
     Dosage: .125MG
     Route: 048
     Dates: start: 20090328, end: 20090406
  2. PRILOSEC [Concomitant]
     Dosage: 40MG
  3. FLONASE [Concomitant]
  4. LORATADINE [Concomitant]
     Dosage: 10MG

REACTIONS (3)
  - BIPOLAR I DISORDER [None]
  - INSOMNIA [None]
  - PSYCHOMOTOR HYPERACTIVITY [None]
